FAERS Safety Report 7860696-9 (Version None)
Quarter: 2011Q4

REPORT INFORMATION
  Report Type: 
  Country: None (occurrence: None)
  Receive Date: 20111027
  Receipt Date: 20111019
  Transmission Date: 20120403
  Serious: Yes (Hospitalization, Other)
  Sender: FDA-Public Use
  Company Number: BR-BAYER-2011-102059

PATIENT
  Age: 58 Year
  Sex: Female

DRUGS (2)
  1. CAPTOPRIL [Concomitant]
     Indication: HYPERTENSION
     Dosage: 1 DF, TID
     Route: 048
  2. INTERFERON BETA-1B [Suspect]
     Indication: MULTIPLE SCLEROSIS
     Dosage: 8 MIU, QOD
     Route: 058
     Dates: start: 19990101

REACTIONS (11)
  - MULTIPLE SCLEROSIS [None]
  - THROMBOSIS [None]
  - PYREXIA [None]
  - IMMUNODEFICIENCY [None]
  - PNEUMONIA [None]
  - LUNG DISORDER [None]
  - FALL [None]
  - CHOKING [None]
  - ASTHENIA [None]
  - PLATELET COUNT DECREASED [None]
  - MUSCULOSKELETAL CHEST PAIN [None]
